FAERS Safety Report 4508041-0 (Version None)
Quarter: 2004Q4

REPORT INFORMATION
  Report Type: 
  Country: None (occurrence: None)
  Receive Date: 20041123
  Receipt Date: 20030923
  Transmission Date: 20050328
  Serious: Yes (Other)
  Sender: FDA-Public Use
  Company Number: US-GLAXOSMITHKLINE-A0427902A

PATIENT
  Age: 16 Year
  Sex: Female

DRUGS (2)
  1. WELLBUTRIN [Suspect]
     Indication: DEPRESSION
     Dosage: 200MG PER DAY
     Route: 048
     Dates: start: 20020322, end: 20030816
  2. ZOLOFT [Concomitant]
     Dosage: 50MG PER DAY

REACTIONS (3)
  - FOAMING AT MOUTH [None]
  - GRAND MAL CONVULSION [None]
  - TONGUE BITING [None]
